FAERS Safety Report 7162804-4 (Version None)
Quarter: 2010Q4

REPORT INFORMATION
  Report Type: 
  Country: None (occurrence: None)
  Receive Date: 20101215
  Receipt Date: 20091218
  Transmission Date: 20110411
  Serious: Yes (Death)
  Sender: FDA-Public Use
  Company Number: JP-PFIZER INC-2009305258

PATIENT
  Age: 58 Year
  Sex: Male
  Weight: 69.6 kg

DRUGS (7)
  1. SUNITINIB MALATE [Suspect]
     Indication: HEPATIC NEOPLASM MALIGNANT
     Dosage: 25 MG, 1X/DAY
     Route: 048
     Dates: start: 20090521
  2. SELBEX [Concomitant]
     Indication: PROPHYLAXIS AGAINST GASTROINTESTINAL ULCER
     Dosage: UNK
     Route: 048
     Dates: start: 20090618
  3. LAFUTIDINE [Concomitant]
     Indication: DUODENITIS
     Dosage: UNK
     Route: 048
     Dates: start: 20090201
  4. ALLOPURINOL [Concomitant]
     Indication: HYPERURICAEMIA
     Dosage: UNK
     Route: 048
     Dates: start: 20090201
  5. LASIX [Concomitant]
     Indication: PROPHYLAXIS
     Dosage: UNK
     Route: 048
     Dates: start: 20090501
  6. ALDACTONE [Concomitant]
     Indication: PROPHYLAXIS
     Dosage: UNK
     Route: 048
     Dates: start: 20090501
  7. CEPHARANTHIN [Concomitant]
     Indication: NEUTROPENIA
     Dosage: UNK
     Route: 048
     Dates: start: 20090903

REACTIONS (12)
  - ANAEMIA [None]
  - BLOOD PRESSURE DECREASED [None]
  - CONVULSION [None]
  - DEPRESSED LEVEL OF CONSCIOUSNESS [None]
  - DISSEMINATED INTRAVASCULAR COAGULATION [None]
  - HEPATIC FAILURE [None]
  - ISCHAEMIC HEPATITIS [None]
  - NEUTROPENIA [None]
  - OESOPHAGEAL VARICES HAEMORRHAGE [None]
  - PLATELET COUNT DECREASED [None]
  - RENAL ISCHAEMIA [None]
  - TOOTH EXTRACTION [None]
